FAERS Safety Report 14966652 (Version 1)
Quarter: 2018Q2

REPORT INFORMATION
  Report Type: Report from Study
  Country: CA (occurrence: CA)
  Receive Date: 20180604
  Receipt Date: 20180604
  Transmission Date: 20180711
  Serious: Yes (Other)
  Sender: FDA-Public Use
  Company Number: CA-ROCHE-2128545

PATIENT
  Sex: Male

DRUGS (9)
  1. ESBRIET [Suspect]
     Active Substance: PIRFENIDONE
     Indication: IDIOPATHIC PULMONARY FIBROSIS
     Route: 048
     Dates: start: 20180517, end: 201805
  2. LASIX [Concomitant]
     Active Substance: FUROSEMIDE
  3. SPIRONOLACTONE. [Concomitant]
     Active Substance: SPIRONOLACTONE
  4. ATORVASTATIN [Concomitant]
     Active Substance: ATORVASTATIN
  5. AVODART [Concomitant]
     Active Substance: DUTASTERIDE
  6. ATACAND [Concomitant]
     Active Substance: CANDESARTAN CILEXETIL
  7. AMLODIPINE [Concomitant]
     Active Substance: AMLODIPINE BESYLATE
  8. FERROUS FUMARATE [Concomitant]
     Active Substance: FERROUS FUMARATE
  9. BISOPROLOL [Concomitant]
     Active Substance: BISOPROLOL

REACTIONS (5)
  - Gait disturbance [Not Recovered/Not Resolved]
  - Cough [Not Recovered/Not Resolved]
  - Pain in extremity [Unknown]
  - Gastrooesophageal reflux disease [Unknown]
  - Dyspnoea [Not Recovered/Not Resolved]
